FAERS Safety Report 8079577-3 (Version None)
Quarter: 2012Q1

REPORT INFORMATION
  Report Type: 
  Country: None (occurrence: None)
  Receive Date: 20120128
  Receipt Date: 20110826
  Transmission Date: 20120608
  Serious: No
  Sender: FDA-Public Use
  Company Number: US-ABBOTT-11P-163-0850369-00

PATIENT
  Sex: Male

DRUGS (7)
  1. IBUPROFEN [Concomitant]
     Indication: PRODUCT USED FOR UNKNOWN INDICATION
  2. METHOCARBIMOL [Concomitant]
     Indication: PRODUCT USED FOR UNKNOWN INDICATION
  3. GLUCOPRO [Concomitant]
     Indication: PRODUCT USED FOR UNKNOWN INDICATION
  4. FORTEO [Suspect]
     Indication: PRODUCT USED FOR UNKNOWN INDICATION
     Dosage: UNKNOWN
  5. HUMIRA [Suspect]
     Indication: RHEUMATOID ARTHRITIS
     Route: 058
     Dates: start: 20110501, end: 20110801
  6. METHOTREXATE [Concomitant]
     Indication: PRODUCT USED FOR UNKNOWN INDICATION
  7. FLUTAMIDE [Concomitant]
     Indication: PRODUCT USED FOR UNKNOWN INDICATION

REACTIONS (2)
  - WEIGHT INCREASED [None]
  - PAIN [None]
